FAERS Safety Report 17742760 (Version 2)
Quarter: 2020Q2

REPORT INFORMATION
  Report Type: Spontaneous
  Country: US (occurrence: US)
  Receive Date: 20200505
  Receipt Date: 20200515
  Transmission Date: 20200714
  Serious: No
  Sender: FDA-Public Use
  Company Number: US-DRREDDYS-USA/USA/20/0122548

PATIENT
  Sex: Female

DRUGS (1)
  1. BUPRENORPHINE AND NALOXONE SUBLINGUAL FILM 4 MG/1 MG AND 12 MG/3 MG [Suspect]
     Active Substance: BUPRENORPHINE\NALOXONE
     Indication: PRODUCT USED FOR UNKNOWN INDICATION
     Dosage: 12MG/3MG
     Route: 060

REACTIONS (1)
  - Chronic obstructive pulmonary disease [Unknown]
